FAERS Safety Report 10755774 (Version 1)
Quarter: 2015Q1

REPORT INFORMATION
  Report Type: Spontaneous
  Country: DE (occurrence: DE)
  Receive Date: 20150202
  Receipt Date: 20150202
  Transmission Date: 20150721
  Serious: Yes (Other)
  Sender: FDA-Public Use
  Company Number: DE-BAYER-2015-012943

PATIENT
  Age: 17 Year
  Sex: Female

DRUGS (10)
  1. CINNARIZINE [Suspect]
     Active Substance: CINNARIZINE
     Indication: SUICIDE ATTEMPT
     Dosage: 18 DF, QD
     Route: 048
     Dates: start: 200307, end: 200307
  2. PARACODIN [Suspect]
     Active Substance: DIHYDROCODEINE BITARTRATE
     Indication: SUICIDE ATTEMPT
     Dosage: UNK
     Route: 048
     Dates: start: 200307, end: 200307
  3. ASPIRIN. [Suspect]
     Active Substance: ASPIRIN
     Indication: SUICIDE ATTEMPT
     Dosage: UNK
     Route: 048
     Dates: start: 200307, end: 200307
  4. VALERIANA COMP [Suspect]
     Active Substance: HOMEOPATHICS
     Indication: SUICIDE ATTEMPT
     Dosage: DOSE: 9-10 TAB QD
     Route: 048
     Dates: start: 200307, end: 200307
  5. DICLOFENAC [Suspect]
     Active Substance: DICLOFENAC
     Indication: SUICIDE ATTEMPT
     Dosage: 5 G, QD
     Route: 048
     Dates: start: 200307, end: 200307
  6. ACETAMINOPHEN. [Suspect]
     Active Substance: ACETAMINOPHEN
     Indication: SUICIDE ATTEMPT
     Dosage: 1 G, UNK
     Route: 048
     Dates: start: 200307, end: 200307
  7. TALCID BAYER [Suspect]
     Active Substance: HYDROTALCITE
     Indication: SUICIDE ATTEMPT
     Dosage: UNKNOWN QD
     Route: 048
     Dates: start: 200307, end: 200307
  8. AERIUS [Suspect]
     Active Substance: DESLORATADINE
     Indication: SUICIDE ATTEMPT
     Dosage: 75 MG, QD
     Route: 048
     Dates: start: 200307, end: 200307
  9. ZOLOFT [Suspect]
     Active Substance: SERTRALINE HYDROCHLORIDE
     Indication: SUICIDE ATTEMPT
     Dosage: 1 G, UNK
     Route: 048
     Dates: start: 200307, end: 200307
  10. ZYRTEC [Suspect]
     Active Substance: CETIRIZINE HYDROCHLORIDE
     Indication: SUICIDE ATTEMPT
     Dosage: 40 MG, QD
     Route: 048
     Dates: start: 200307, end: 200307

REACTIONS (2)
  - Tremor [None]
  - Pallor [None]

NARRATIVE: CASE EVENT DATE: 200307
